FAERS Safety Report 8613428 (Version 4)
Quarter: 2013Q4

REPORT INFORMATION
  Report Type: Spontaneous
  Country: US (occurrence: US)
  Receive Date: 20120613
  Receipt Date: 20131105
  Transmission Date: 20140711
  Serious: Yes (Life-Threatening, Hospitalization, Disabling, Other)
  Sender: FDA-Public Use
  Company Number: US-009507513-1206USA01568

PATIENT
  Age: 40 Year
  Sex: Female

DRUGS (14)
  1. FOSAMAX [Suspect]
     Indication: ABDOMINAL PAIN UPPER
     Dosage: UNK UNK, QW
     Route: 048
     Dates: start: 20090405
  2. NAPROXEN SODIUM [Suspect]
  3. PROTONIX [Concomitant]
     Indication: ABDOMINAL PAIN UPPER
     Dosage: UNK UNK, QD
     Dates: start: 200902
  4. CAPTOPRIL [Concomitant]
     Indication: BLOOD PRESSURE
     Dosage: UNK UNK, QD
     Dates: start: 1999
  5. CAPTOPRIL [Concomitant]
     Indication: RENAL IMPAIRMENT
  6. EFFEXOR [Concomitant]
     Indication: ANXIETY
     Dosage: UNK UNK, QD
     Dates: start: 2001
  7. EFFEXOR [Concomitant]
     Indication: DEPRESSION
  8. LEVOTIROXINA S.O [Concomitant]
     Indication: HYPOTHYROIDISM
     Dosage: UNK UNK, QD
     Dates: start: 1999
  9. ASPIRIN [Concomitant]
     Indication: PROPHYLAXIS
     Dosage: UNK UNK, QD
  10. VITAMINS (UNSPECIFIED) [Concomitant]
     Dosage: UNK UNK, QD
  11. CALCIUM (UNSPECIFIED) [Concomitant]
     Indication: OSTEOPENIA
     Dosage: UNK UNK, QD
     Dates: start: 200904
  12. VITAMIN D (UNSPECIFIED) [Concomitant]
     Indication: OSTEOPENIA
     Dosage: UNK UNK, QD
     Dates: start: 200904
  13. INSULIN [Concomitant]
     Indication: DIABETES MELLITUS
  14. XANAX [Concomitant]
     Indication: ANXIETY

REACTIONS (7)
  - Haemolytic uraemic syndrome [Recovered/Resolved]
  - Thrombotic thrombocytopenic purpura [Recovered/Resolved]
  - Cholecystitis acute [Recovered/Resolved]
  - Underdose [Unknown]
  - Nephritis [Recovered/Resolved]
  - Adverse event [Unknown]
  - Abdominal discomfort [Recovered/Resolved]
